FAERS Safety Report 18786212 (Version 1)
Quarter: 2021Q1

REPORT INFORMATION
  Report Type: Spontaneous
  Country: ES (occurrence: ES)
  Receive Date: 20210126
  Receipt Date: 20210126
  Transmission Date: 20210419
  Serious: Yes (Other)
  Sender: FDA-Public Use
  Company Number: ES-009507513-2101ESP010445

PATIENT
  Age: 61 Year
  Sex: Female

DRUGS (6)
  1. DOXAZOSIN MESYLATE. [Concomitant]
     Active Substance: DOXAZOSIN MESYLATE
     Indication: PRODUCT USED FOR UNKNOWN INDICATION
     Dosage: UNK UNK, UNKNOWN FREQ., FORMULATION UNKNOWN
     Route: 048
     Dates: start: 20201117
  2. AMLODIPINO SANDOZ (AMLODIPINE MESYLATE) [Concomitant]
     Indication: PRODUCT USED FOR UNKNOWN INDICATION
     Dosage: UNK UNK, UNKNOWN FREQ., FORMULATION UNKNOWN
     Route: 048
     Dates: start: 20201005
  3. BISOPROLOL [Concomitant]
     Active Substance: BISOPROLOL
     Indication: PRODUCT USED FOR UNKNOWN INDICATION
     Dosage: UNK UNK, UNKNOWN FREQ., FORMULATION UNKNOWN
     Route: 048
     Dates: start: 20201005
  4. DARBEPOETIN ALFA [Concomitant]
     Active Substance: DARBEPOETIN ALFA
     Indication: PRODUCT USED FOR UNKNOWN INDICATION
     Dosage: UNK UNK, UNKNOWN FREQ., FORMULATION UNKNOWN
     Route: 065
     Dates: start: 20201010
  5. FIDAXOMICIN [Suspect]
     Active Substance: FIDAXOMICIN
     Indication: CLOSTRIDIUM DIFFICILE INFECTION
     Dosage: UNK UNK, UNKNOWN FREQ.
     Route: 048
     Dates: start: 20201118, end: 20201123
  6. LORAZEPAM. [Concomitant]
     Active Substance: LORAZEPAM
     Indication: PRODUCT USED FOR UNKNOWN INDICATION
     Dosage: UNK UNK, UNKNOWN FREQ., FORMULATION UNKNOWN
     Route: 065
     Dates: start: 20201010

REACTIONS (3)
  - Rash pruritic [Recovered/Resolved]
  - Eosinophilia [Recovered/Resolved]
  - Face oedema [Recovered/Resolved]

NARRATIVE: CASE EVENT DATE: 20201121
